FAERS Safety Report 9925109 (Version 2)
Quarter: 2014Q1

REPORT INFORMATION
  Report Type: Spontaneous
  Country: US (occurrence: US)
  Receive Date: 20140226
  Receipt Date: 20140226
  Transmission Date: 20141002
  Serious: Yes (Death, Hospitalization)
  Sender: FDA-Public Use
  Company Number: US-ACTELION-A-US2014-94873

PATIENT
  Age: 36 Year
  Sex: Male

DRUGS (2)
  1. VELETRI [Suspect]
     Indication: PULMONARY ARTERIAL HYPERTENSION
     Dosage: 30 NG/KG, PER MIN
     Route: 042
     Dates: start: 20140123, end: 20140213
  2. COUMADIN [Concomitant]

REACTIONS (6)
  - Pulmonary arterial hypertension [Fatal]
  - Respiratory failure [Fatal]
  - Fluid retention [Fatal]
  - Weight increased [Fatal]
  - Dyspnoea [Fatal]
  - Oxygen saturation decreased [Fatal]
